FAERS Safety Report 11828758 (Version 1)
Quarter: 2015Q4

REPORT INFORMATION
  Report Type: Spontaneous
  Country: ZA (occurrence: ZA)
  Receive Date: 20151211
  Receipt Date: 20151211
  Transmission Date: 20160305
  Serious: Yes (Death, Life-Threatening, Hospitalization, Disabling, Congenital Anomaly, Other)
  Sender: FDA-Public Use
  Company Number: ZA-BRISTOL-MYERS SQUIBB COMPANY-11899614

PATIENT

DRUGS (3)
  1. VIRAMUNE [Suspect]
     Active Substance: NEVIRAPINE
     Indication: PRODUCT USED FOR UNKNOWN INDICATION
     Dosage: 200 MG, BID
     Route: 064
     Dates: start: 20011219
  2. EFAVIRENZ [Suspect]
     Active Substance: EFAVIRENZ
     Indication: PRODUCT USED FOR UNKNOWN INDICATION
     Dosage: 600 MG, QD
     Route: 064
     Dates: start: 19991123, end: 20011218
  3. COMBIVIR [Suspect]
     Active Substance: LAMIVUDINE\ZIDOVUDINE
     Indication: PRODUCT USED FOR UNKNOWN INDICATION
     Dosage: 1 DF, UNK
     Route: 064
     Dates: start: 20010116, end: 20020730

REACTIONS (8)
  - Cardiac failure [Fatal]
  - Coarctation of the aorta [Unknown]
  - Transposition of the great vessels [Unknown]
  - Heterotaxia [Unknown]
  - Cardiac septal defect [Unknown]
  - Brain malformation [Unknown]
  - Foetal exposure during pregnancy [Recovered/Resolved]
  - Foetal distress syndrome [Unknown]

NARRATIVE: CASE EVENT DATE: 2002
